FAERS Safety Report 9302141 (Version 2)
Quarter: 2013Q4

REPORT INFORMATION
  Report Type: Spontaneous
  Country: US (occurrence: US)
  Receive Date: 20130522
  Receipt Date: 20131108
  Transmission Date: 20140711
  Serious: Yes (Hospitalization)
  Sender: FDA-Public Use
  Company Number: US-B.I. PHARMACEUTICALS,INC./RIDGEFIELD-2013-BI-14126BP

PATIENT
  Age: 80 Year
  Sex: Female
  Weight: 95.25 kg

DRUGS (12)
  1. PRADAXA [Suspect]
     Indication: ANTICOAGULANT THERAPY
     Dates: start: 20110519, end: 20121124
  2. PRADAXA [Suspect]
     Indication: ATRIAL FIBRILLATION
  3. ALTACE [Concomitant]
     Dosage: 5 MG
  4. RYTHMOL [Concomitant]
     Dosage: 450 MG
  5. LASIX [Concomitant]
     Dosage: 40 MG
  6. PEPCID [Concomitant]
     Dosage: 20 MG
  7. PRIMIDONE [Concomitant]
     Dosage: 50 MG
  8. CELEBREX [Concomitant]
     Dosage: 400 MG
  9. ZOCOR [Concomitant]
     Dosage: 10 MG
  10. SYNTHROID [Concomitant]
  11. LORTAB [Concomitant]
  12. OSTEO BI-FLEX [Concomitant]

REACTIONS (3)
  - Lower gastrointestinal haemorrhage [Recovered/Resolved]
  - Haemorrhagic anaemia [Unknown]
  - Renal failure acute [Recovered/Resolved]
